FAERS Safety Report 7208313-5 (Version None)
Quarter: 2011Q1

REPORT INFORMATION
  Report Type: 
  Country: None (occurrence: None)
  Receive Date: 20110104
  Receipt Date: 20101213
  Transmission Date: 20110831
  Serious: No
  Sender: FDA-Public Use
  Company Number: US-B.I. PHARMACEUTICALS,INC./RIDGEFIELD-2010-BP-11926BP

PATIENT
  Sex: Female
  Weight: 73.03 kg

DRUGS (16)
  1. LOSARTAN [Concomitant]
     Indication: HYPERTENSION
     Dosage: 50 MG
     Route: 048
     Dates: start: 20100610
  2. CALCIUM [Concomitant]
  3. SUCRALFATE [Concomitant]
  4. IMIPRAMINE [Concomitant]
     Indication: INCONTINENCE
     Dosage: 25 MG
     Route: 048
  5. DOXYCYCLINE [Concomitant]
  6. PREMARIN [Concomitant]
     Indication: MENOPAUSE
     Dosage: 6.25 MG
     Route: 048
  7. SULFATE [Concomitant]
     Indication: ABDOMINAL DISCOMFORT
     Dosage: 2 G
     Route: 048
  8. HYCLATE [Concomitant]
  9. SPIRIVA [Suspect]
     Indication: ASTHMA
     Dosage: 18 MCG
     Route: 055
     Dates: start: 20100101, end: 20100921
  10. ASPIRIN [Concomitant]
     Indication: PROPHYLAXIS
     Dosage: 81 MG
     Route: 048
  11. SPIRIVA [Suspect]
     Indication: OXYGEN SATURATION DECREASED
  12. SIMVASTATIN [Concomitant]
     Indication: BLOOD CHOLESTEROL INCREASED
     Dosage: 40 MG
     Route: 048
     Dates: start: 20080104
  13. LEVOTHYROXINE [Concomitant]
     Indication: HYPOTHYROIDISM
     Dosage: 112 MG
     Route: 048
     Dates: start: 20080305
  14. METAMUCIL-2 [Concomitant]
     Indication: FAECES HARD
  15. ADVAIR [Concomitant]
     Dates: start: 20081114
  16. ALBUTEROL [Concomitant]
     Dosage: 8 PUF
     Dates: start: 20080505

REACTIONS (4)
  - APHONIA [None]
  - ACTIVITIES OF DAILY LIVING IMPAIRED [None]
  - DYSPHONIA [None]
  - ALOPECIA [None]
